FAERS Safety Report 17061765 (Version 7)
Quarter: 2020Q2

REPORT INFORMATION
  Report Type: Spontaneous
  Country: US (occurrence: US)
  Receive Date: 20191121
  Receipt Date: 20200608
  Transmission Date: 20200713
  Serious: Yes (Hospitalization)
  Sender: FDA-Public Use
  Company Number: US-ACTELION-A-US2019-198385

PATIENT
  Age: 58 Year
  Sex: Female
  Weight: 89.34 kg

DRUGS (5)
  1. REMODULIN [Suspect]
     Active Substance: TREPROSTINIL
     Indication: PRODUCT USED FOR UNKNOWN INDICATION
     Dosage: 48 NG/KG, PER MIN
     Route: 042
     Dates: start: 20200327
  2. ELIQUIS [Concomitant]
     Active Substance: APIXABAN
  3. ADEMPAS [Suspect]
     Active Substance: RIOCIGUAT
     Indication: PRODUCT USED FOR UNKNOWN INDICATION
     Dosage: 2.5 MG
     Route: 065
  4. OPSUMIT [Suspect]
     Active Substance: MACITENTAN
     Indication: PULMONARY ARTERIAL HYPERTENSION
     Dosage: 10 MG, QD
     Route: 048
     Dates: start: 20190828
  5. ADEMPAS [Suspect]
     Active Substance: RIOCIGUAT
     Dosage: UNK
     Route: 065

REACTIONS (13)
  - Skin exfoliation [Unknown]
  - Hyperhidrosis [Unknown]
  - Cough [Unknown]
  - Device issue [Unknown]
  - Asthenia [Unknown]
  - Abnormal loss of weight [Unknown]
  - Weight decreased [Unknown]
  - Peripheral swelling [Unknown]
  - Decreased appetite [Unknown]
  - Dizziness [Unknown]
  - Device malfunction [Recovered/Resolved]
  - Hospitalisation [Unknown]
  - Feeling abnormal [Unknown]

NARRATIVE: CASE EVENT DATE: 20200326
